FAERS Safety Report 5591850-7 (Version None)
Quarter: 2008Q1

REPORT INFORMATION
  Report Type: 
  Country: None (occurrence: None)
  Receive Date: 20080115
  Receipt Date: 20080108
  Transmission Date: 20080703
  Serious: Yes (Other)
  Sender: FDA-Public Use
  Company Number: B0502522A

PATIENT
  Sex: Male

DRUGS (1)
  1. REPREVE [Suspect]
     Indication: RESTLESS LEGS SYNDROME

REACTIONS (5)
  - FORMICATION [None]
  - INSOMNIA [None]
  - NERVOUSNESS [None]
  - PANIC ATTACK [None]
  - SUICIDAL IDEATION [None]
